FAERS Safety Report 18800133 (Version 3)
Quarter: 2021Q1

REPORT INFORMATION
  Report Type: Spontaneous
  Country: FR (occurrence: FR)
  Receive Date: 20210128
  Receipt Date: 20210223
  Transmission Date: 20210419
  Serious: Yes (Life-Threatening, Hospitalization, Other)
  Sender: FDA-Public Use
  Company Number: FR-PFIZER INC-2021065840

PATIENT
  Age: 40 Year
  Sex: Male
  Weight: 80 kg

DRUGS (3)
  1. AUBAGIO [Suspect]
     Active Substance: TERIFLUNOMIDE
     Indication: RELAPSING-REMITTING MULTIPLE SCLEROSIS
     Dosage: 14 MG, 1X/DAY
     Route: 048
     Dates: start: 201806, end: 20201222
  2. METHYLPREDNISOLONE SODIUM SUCCINATE. [Suspect]
     Active Substance: METHYLPREDNISOLONE SODIUM SUCCINATE
     Indication: ENCEPHALITIS
     Dosage: 80 MG, 1X/DAY
     Route: 041
     Dates: start: 20201229, end: 20210104
  3. ACICLOVIR [Concomitant]
     Active Substance: ACYCLOVIR
     Indication: MENINGOENCEPHALITIS HERPETIC
     Dosage: 2250 MG, 1X/DAY
     Route: 040
     Dates: start: 20201215

REACTIONS (2)
  - Off label use [Unknown]
  - Herpes zoster meningitis [Not Recovered/Not Resolved]

NARRATIVE: CASE EVENT DATE: 20201229
